FAERS Safety Report 7982230-5 (Version None)
Quarter: 2011Q4

REPORT INFORMATION
  Report Type: 
  Country: None (occurrence: None)
  Receive Date: 20111215
  Receipt Date: 20111215
  Transmission Date: 20120403
  Serious: Yes (Life-Threatening)
  Sender: FDA-Public Use
  Company Number: None

PATIENT
  Age: 41 Year
  Sex: Female
  Weight: 86.182 kg

DRUGS (1)
  1. METHADOSE [Suspect]
     Indication: DRUG DEPENDENCE
     Dosage: 140MG
     Route: 048

REACTIONS (5)
  - DRUG WITHDRAWAL SYNDROME [None]
  - PARAESTHESIA [None]
  - HYPERTENSION [None]
  - CONVULSION [None]
  - RESTLESSNESS [None]
